FAERS Safety Report 7553002-0 (Version None)
Quarter: 2011Q2

REPORT INFORMATION
  Report Type: 
  Country: None (occurrence: None)
  Receive Date: 20110616
  Receipt Date: 20110605
  Transmission Date: 20111010
  Serious: Yes (Hospitalization)
  Sender: FDA-Public Use
  Company Number: GB-NAPPMUNDI-GBR-2011-0008272

PATIENT
  Sex: Female

DRUGS (5)
  1. OXYCONTIN [Suspect]
     Indication: RHEUMATOID ARTHRITIS
     Dosage: 60 MG, DAILY
     Route: 048
     Dates: start: 20110430, end: 20110502
  2. MOTILIUM                           /00498201/ [Concomitant]
     Dosage: UNK
  3. ENOXAPARIN SODIUM [Concomitant]
  4. TAVOR                              /00273201/ [Concomitant]
  5. AZITHROMYCIN [Concomitant]

REACTIONS (5)
  - HALLUCINATION, VISUAL [None]
  - AGITATION [None]
  - TREMOR [None]
  - VOMITING [None]
  - ALTERED STATE OF CONSCIOUSNESS [None]
